FAERS Safety Report 19753026 (Version 1)
Quarter: 2021Q3

REPORT INFORMATION
  Report Type: Spontaneous
  Country: US (occurrence: US)
  Receive Date: 20210827
  Receipt Date: 20210827
  Transmission Date: 20211014
  Serious: No
  Sender: FDA-Public Use
  Company Number: US-B.I. PHARMACEUTICALS,INC./RIDGEFIELD-2021-BI-123824

PATIENT
  Age: 80 Year
  Sex: Female

DRUGS (1)
  1. SYNJARDY XR [Suspect]
     Active Substance: EMPAGLIFLOZIN\METFORMIN HYDROCHLORIDE
     Indication: PRODUCT USED FOR UNKNOWN INDICATION
     Dosage: 12.5MG/1000MG
     Dates: start: 20210825

REACTIONS (14)
  - Nausea [Unknown]
  - Hypertension [Unknown]
  - Abdominal distension [Not Recovered/Not Resolved]
  - Pruritus [Unknown]
  - Nasopharyngitis [Unknown]
  - Peripheral swelling [Unknown]
  - Gastrooesophageal reflux disease [Unknown]
  - Formication [Unknown]
  - Nasal congestion [Not Recovered/Not Resolved]
  - Chest discomfort [Recovered/Resolved]
  - Throat irritation [Unknown]
  - Paraesthesia [Unknown]
  - Diarrhoea [Unknown]
  - Tongue erythema [Unknown]

NARRATIVE: CASE EVENT DATE: 20210825
